FAERS Safety Report 25763982 (Version 2)
Quarter: 2025Q4

REPORT INFORMATION
  Report Type: Report from Study
  Country: US (occurrence: US)
  Receive Date: 20250905
  Receipt Date: 20251128
  Transmission Date: 20260118
  Serious: Yes (Hospitalization, Other)
  Sender: HELSINN HEALTHCARE
  Company Number: US-HBP-2024US030586

PATIENT
  Sex: Male

DRUGS (14)
  1. VALCHLOR [Suspect]
     Active Substance: MECHLORETHAMINE
     Indication: Cutaneous T-cell lymphoma
     Dosage: THIN FILM ONCE DAILY ON ? OF HIS BODY
     Route: 061
  2. VALCHLOR [Suspect]
     Active Substance: MECHLORETHAMINE
     Dosage: EVERY OTHER DAY OR WHAT HE WOULD FEEL COMFORTABLE WITH
     Route: 061
  3. VALCHLOR [Suspect]
     Active Substance: MECHLORETHAMINE
     Dosage: THREE OR FOUR TIMES FOR A WEEK
     Route: 061
  4. VALCHLOR [Suspect]
     Active Substance: MECHLORETHAMINE
     Dosage: UNK, ONCE OR TWICE PER WEEK
     Route: 061
     Dates: start: 20240308
  5. VALCHLOR [Suspect]
     Active Substance: MECHLORETHAMINE
     Dosage: UNK, QD
     Route: 061
     Dates: end: 2025
  6. VALCHLOR [Suspect]
     Active Substance: MECHLORETHAMINE
     Dosage: UNK, PRN, RARELY USED IT, ONLY IN FLARE UPS
     Route: 061
     Dates: start: 2025
  7. PFIZER-BIONTECH COVID-19 VACCINE [Suspect]
     Active Substance: TOZINAMERAN
     Indication: Paraesthesia
     Dosage: UNK
     Dates: start: 202104
  8. COVID-19 VACCINE NOS [Suspect]
     Active Substance: COVID-19 VACCINE
     Indication: Rash macular
  9. COVID-19 VACCINE NOS [Suspect]
     Active Substance: COVID-19 VACCINE
     Indication: Skin exfoliation
  10. TRIAMCINOLONE [Concomitant]
     Active Substance: TRIAMCINOLONE
     Indication: Cutaneous T-cell lymphoma
     Dosage: VALCHLOR WAS USED DAILY ON ? OF HIS BODY [ON HIS MYCOSIS FUNGOIDES SPOTS] AND THE OTHER ? OF HIS BOD
  11. CLOPIDOGREL [Concomitant]
     Active Substance: CLOPIDOGREL BISULFATE
     Dosage: UNK, UNKNOWN
  12. METOPROLOL [Concomitant]
     Active Substance: METOPROLOL
     Dosage: UNK, UNKNOWN
  13. AMIODARONE [Concomitant]
     Active Substance: AMIODARONE
     Dosage: UNK, UNKNOWN
  14. NEXLIZET [Concomitant]
     Active Substance: BEMPEDOIC ACID\EZETIMIBE
     Dosage: UNK, UNKNOWN

REACTIONS (10)
  - Viral infection [Unknown]
  - Cutaneous T-cell lymphoma recurrent [Unknown]
  - Condition aggravated [Unknown]
  - Intentional product use issue [Unknown]
  - Off label use [Unknown]
  - Paraesthesia [Unknown]
  - Skin exfoliation [Recovered/Resolved]
  - Application site erythema [Recovered/Resolved]
  - Rash macular [Recovered/Resolved]
  - Eczema [Unknown]

NARRATIVE: CASE EVENT DATE: 20210101
